FAERS Safety Report 5526133-4 (Version None)
Quarter: 2007Q4

REPORT INFORMATION
  Report Type: 
  Country: None (occurrence: None)
  Receive Date: 20071120
  Receipt Date: 20071105
  Transmission Date: 20080405
  Serious: Yes (Other)
  Sender: FDA-Public Use
  Company Number: 2007001945

PATIENT
  Age: 74 Year
  Sex: Male

DRUGS (2)
  1. TARCEVA [Suspect]
     Indication: LUNG CANCER METASTATIC
     Dosage: 150 MG, QD, ORAL
     Route: 048
     Dates: start: 20070115
  2. ACETAMINOPHEN [Concomitant]

REACTIONS (5)
  - ACNE [None]
  - DISEASE RECURRENCE [None]
  - DRUG INEFFECTIVE [None]
  - HERPES ZOSTER [None]
  - RASH MACULO-PAPULAR [None]
